FAERS Safety Report 19019451 (Version 1)
Quarter: 2021Q1

REPORT INFORMATION
  Report Type: Spontaneous
  Country: PT (occurrence: PT)
  Receive Date: 20210316
  Receipt Date: 20210316
  Transmission Date: 20210420
  Serious: Yes (Life-Threatening)
  Sender: FDA-Public Use
  Company Number: PT-CANTON LABORATORIES, LLC-2108064

PATIENT
  Age: 51 Year

DRUGS (1)
  1. NAPROSYN [Suspect]
     Active Substance: NAPROXEN
     Indication: SPONDYLITIS
     Route: 048
     Dates: start: 2011

REACTIONS (1)
  - Abdominal neoplasm [Unknown]

NARRATIVE: CASE EVENT DATE: 20210119
